FAERS Safety Report 23395933 (Version 1)
Quarter: 2024Q1

REPORT INFORMATION
  Report Type: Spontaneous
  Country: FR (occurrence: FR)
  Receive Date: 20240112
  Receipt Date: 20240112
  Transmission Date: 20240410
  Serious: Yes (Life-Threatening, Other)
  Sender: FDA-Public Use
  Company Number: None

PATIENT
  Age: 75 Year
  Sex: Female
  Weight: 47 kg

DRUGS (11)
  1. HYDROXYUREA [Suspect]
     Active Substance: HYDROXYUREA
     Indication: Acute myeloid leukaemia
     Dosage: 2-2-2/MORNING, NOON AND EVENING ?DAILY DOSE: 6 DOSAGE FORM
     Route: 048
     Dates: start: 20231006, end: 20231010
  2. HYDROXYUREA [Suspect]
     Active Substance: HYDROXYUREA
     Indication: Acute myeloid leukaemia
     Dosage: 2-0-2?DAILY DOSE: 4 DOSAGE FORM
     Route: 048
     Dates: start: 20231010, end: 20231012
  3. HYDROXYUREA [Suspect]
     Active Substance: HYDROXYUREA
     Indication: Acute myeloid leukaemia
     Dosage: 1-1-1?DAILY DOSE: 3 DOSAGE FORM
     Route: 048
     Dates: start: 20231012, end: 20231013
  4. HYDROXYUREA [Suspect]
     Active Substance: HYDROXYUREA
     Indication: Acute myeloid leukaemia
     Dosage: 1-0-1?DAILY DOSE: 2 DOSAGE FORM
     Route: 048
     Dates: start: 20231013, end: 20231015
  5. HYDROXYUREA [Suspect]
     Active Substance: HYDROXYUREA
     Indication: Acute myeloid leukaemia
     Dosage: 1-0-2?DAILY DOSE: 3 DOSAGE FORM
     Route: 048
     Dates: start: 20231016, end: 20231016
  6. HYDROXYUREA [Suspect]
     Active Substance: HYDROXYUREA
     Indication: Acute myeloid leukaemia
     Dosage: 2-0-2/MORNING AND EVENING ?DAILY DOSE: 4 DOSAGE FORM
     Route: 048
     Dates: start: 20231017
  7. DEXAMETHASONE [Suspect]
     Active Substance: DEXAMETHASONE
     Dates: start: 20231006
  8. MIRTAZAPINE [Concomitant]
     Active Substance: MIRTAZAPINE
     Dosage: IN THE EVENING ?DAILY DOSE: 3 DOSAGE FORM
  9. OXAZEPAM [Concomitant]
     Active Substance: OXAZEPAM
     Dosage: DAILY DOSE: 1 DOSAGE FORM
  10. MELATONIN [Concomitant]
     Active Substance: MELATONIN
  11. ESOMEPRAZOLE [Concomitant]
     Active Substance: ESOMEPRAZOLE

REACTIONS (3)
  - Pancytopenia [Not Recovered/Not Resolved]
  - Thrombocytopenia [Not Recovered/Not Resolved]
  - Condition aggravated [Not Recovered/Not Resolved]

NARRATIVE: CASE EVENT DATE: 20231023
